FAERS Safety Report 16277920 (Version 5)
Quarter: 2025Q1

REPORT INFORMATION
  Report Type: Report from Study
  Country: US (occurrence: US)
  Receive Date: 20190506
  Receipt Date: 20250124
  Transmission Date: 20250409
  Serious: Yes (Life-Threatening, Hospitalization, Other)
  Sender: PFIZER
  Company Number: US-PFIZER INC-2019189319

PATIENT
  Age: 7 Year
  Sex: Male

DRUGS (3)
  1. METHOTREXATE SODIUM [Interacting]
     Active Substance: METHOTREXATE SODIUM
     Indication: Acute lymphocytic leukaemia
  2. IMATINIB [Interacting]
     Active Substance: IMATINIB
     Indication: Acute lymphocytic leukaemia
  3. METHOTREXATE [Interacting]
     Active Substance: METHOTREXATE
     Indication: Acute lymphocytic leukaemia
     Dosage: 20 MG/M2, WEEKLY (DURING MAINTENANCE THERAPY)
     Route: 048

REACTIONS (7)
  - Neutropenia [Unknown]
  - Thrombocytopenia [Unknown]
  - Acute kidney injury [Unknown]
  - Clostridium difficile colitis [Unknown]
  - Mucosal inflammation [Unknown]
  - Drug interaction [Recovering/Resolving]
  - Drug clearance decreased [Recovering/Resolving]
